FAERS Safety Report 8030437-3 (Version None)
Quarter: 2012Q1

REPORT INFORMATION
  Report Type: 
  Country: None (occurrence: None)
  Receive Date: 20120105
  Receipt Date: 20110727
  Transmission Date: 20120608
  Serious: Yes (Hospitalization)
  Sender: FDA-Public Use
  Company Number: FR-023354

PATIENT
  Age: 79 Year
  Sex: Female

DRUGS (2)
  1. RITUXAN [Suspect]
     Indication: CHRONIC LYMPHOCYTIC LEUKAEMIA
     Route: 042
  2. CHLORAMBUCIL [Suspect]
     Indication: CHRONIC LYMPHOCYTIC LEUKAEMIA
     Dosage: TABLET 36 MG EVERY TWO WEEKS ORAL
     Route: 048
     Dates: start: 20101115

REACTIONS (5)
  - NEPHROLITHIASIS [None]
  - ABDOMINAL PAIN [None]
  - CONSTIPATION [None]
  - VOMITING [None]
  - PYREXIA [None]
